FAERS Safety Report 11044981 (Version 2)
Quarter: 2015Q2

REPORT INFORMATION
  Report Type: Spontaneous
  Country: US (occurrence: US)
  Receive Date: 20150417
  Receipt Date: 20150608
  Transmission Date: 20150821
  Serious: No
  Sender: FDA-Public Use
  Company Number: US-PFIZER INC-2015126354

PATIENT
  Age: 66 Year
  Sex: Female
  Weight: 48 kg

DRUGS (1)
  1. ADVIL COLD AND SINUS [Suspect]
     Active Substance: IBUPROFEN\PSEUDOEPHEDRINE HYDROCHLORIDE
     Indication: SINUS HEADACHE
     Dosage: UNK
     Dates: start: 20150412

REACTIONS (4)
  - Condition aggravated [Unknown]
  - Headache [Unknown]
  - Nausea [Unknown]
  - Drug ineffective [Unknown]
